FAERS Safety Report 12905767 (Version 2)
Quarter: 2016Q4

REPORT INFORMATION
  Report Type: Report from Study
  Country: US (occurrence: US)
  Receive Date: 20161103
  Receipt Date: 20161124
  Transmission Date: 20170207
  Serious: Yes (Death, Other)
  Sender: FDA-Public Use
  Company Number: US-ACCORD-045287

PATIENT
  Age: 7 Decade
  Sex: Male

DRUGS (4)
  1. SIMVASTATIN. [Suspect]
     Active Substance: SIMVASTATIN
     Indication: PRODUCT USED FOR UNKNOWN INDICATION
  2. TORASEMIDE [Concomitant]
     Active Substance: TORSEMIDE
  3. PROPRANOLOL [Concomitant]
     Active Substance: PROPRANOLOL\PROPRANOLOL HYDROCHLORIDE
  4. NITROGLYCERIN. [Concomitant]
     Active Substance: NITROGLYCERIN

REACTIONS (10)
  - Mood altered [Unknown]
  - Arthropathy [Unknown]
  - Depression [Unknown]
  - Completed suicide [Fatal]
  - Gun shot wound [Fatal]
  - Personality disorder [Unknown]
  - Abnormal behaviour [Unknown]
  - Irritability [Unknown]
  - Muscle disorder [Unknown]
  - Aggression [Unknown]
